FAERS Safety Report 17388539 (Version 1)
Quarter: 2020Q1

REPORT INFORMATION
  Report Type: Spontaneous
  Country: US (occurrence: US)
  Receive Date: 20200207
  Receipt Date: 20200207
  Transmission Date: 20200409
  Serious: No
  Sender: FDA-Public Use
  Company Number: US-PFIZER INC-2020052547

PATIENT
  Age: 18 Year
  Sex: Male

DRUGS (12)
  1. ROBITUSSIN (GUAIFENESIN) [Suspect]
     Active Substance: GUAIFENESIN
     Indication: SNEEZING
  2. LORATADINE. [Suspect]
     Active Substance: LORATADINE
     Indication: LACRIMATION INCREASED
  3. LORATADINE. [Suspect]
     Active Substance: LORATADINE
     Indication: EYE IRRITATION
  4. FLUTICASONE. [Suspect]
     Active Substance: FLUTICASONE
     Indication: SNEEZING
  5. FLUTICASONE. [Suspect]
     Active Substance: FLUTICASONE
     Indication: OROPHARYNGEAL PAIN
     Dosage: UNK
  6. FLUTICASONE. [Suspect]
     Active Substance: FLUTICASONE
     Indication: LACRIMATION INCREASED
  7. ROBITUSSIN (GUAIFENESIN) [Suspect]
     Active Substance: GUAIFENESIN
     Indication: EYE IRRITATION
  8. LORATADINE. [Suspect]
     Active Substance: LORATADINE
     Indication: OROPHARYNGEAL PAIN
     Dosage: UNK
  9. LORATADINE. [Suspect]
     Active Substance: LORATADINE
     Indication: SNEEZING
  10. ROBITUSSIN (GUAIFENESIN) [Suspect]
     Active Substance: GUAIFENESIN
     Indication: OROPHARYNGEAL PAIN
     Dosage: UNK
  11. ROBITUSSIN (GUAIFENESIN) [Suspect]
     Active Substance: GUAIFENESIN
     Indication: LACRIMATION INCREASED
  12. FLUTICASONE. [Suspect]
     Active Substance: FLUTICASONE
     Indication: EYE IRRITATION

REACTIONS (1)
  - Drug ineffective [Unknown]
